FAERS Safety Report 10550533 (Version 1)
Quarter: 2014Q4

REPORT INFORMATION
  Report Type: Spontaneous
  Country: US (occurrence: US)
  Receive Date: 20141029
  Receipt Date: 20141029
  Transmission Date: 20150529
  Serious: No
  Sender: FDA-Public Use
  Company Number: US-009507513-1410USA013925

PATIENT
  Age: 59 Year
  Sex: Female

DRUGS (5)
  1. PROPRANOLOL HYDROCHLORIDE. [Concomitant]
     Active Substance: PROPRANOLOL HYDROCHLORIDE
  2. DULERA [Suspect]
     Active Substance: FORMOTEROL FUMARATE DIHYDRATE\MOMETASONE FUROATE
     Dosage: 220 MICROGRAM, TWO PUFFS IN THE MORNING AND TWO PUFFS AT NIGHT
     Route: 055
     Dates: start: 201410
  3. METRONIDAZOLE. [Concomitant]
     Active Substance: METRONIDAZOLE
  4. DULERA [Suspect]
     Active Substance: FORMOTEROL FUMARATE DIHYDRATE\MOMETASONE FUROATE
     Indication: ASTHMA
     Dosage: 220 MICROGRAM, TWO PUFFS IN THE MORNING AND TWO PUFFS AT NIGHT
     Route: 055
     Dates: start: 20140909, end: 20141018
  5. ORACEA [Concomitant]
     Active Substance: DOXYCYCLINE

REACTIONS (2)
  - Product quality issue [Unknown]
  - Inappropriate schedule of drug administration [Unknown]

NARRATIVE: CASE EVENT DATE: 20140909
